FAERS Safety Report 7388755 (Version 2)
Quarter: 2014Q4

REPORT INFORMATION
  Report Type: Spontaneous
  Country: US (occurrence: None)
  Receive Date: 20100507
  Receipt Date: 20141017
  Transmission Date: 20150529
  Serious: Yes (Hospitalization)
  Sender: FDA-Public Use
  Company Number: 2010001261

PATIENT
  Age: 61 Year
  Sex: Female
  Weight: 69.4 kg

DRUGS (3)
  1. GEMCITABINE [Suspect]
     Active Substance: GEMCITABINE\GEMCITABINE HYDROCHLORIDE
     Indication: COLON CANCER METASTATIC
     Dosage: 1000 MG/M2, DAY 1, 8, 15, 22, 29, 36 AND 43, INTRAVENOUS
     Route: 042
     Dates: start: 20100322
  2. ERLOTINIB [Suspect]
     Active Substance: ERLOTINIB
     Indication: COLON CANCER METASTATIC
     Dosage: 75 MG, QD, ORAL
     Route: 048
     Dates: start: 20100322
  3. VISMODEGIB [Suspect]
     Active Substance: VISMODEGIB
     Indication: COLON CANCER METASTATIC
     Dosage: 150 MG, QD, ORAL
     Route: 048
     Dates: start: 20100322

REACTIONS (9)
  - Abdominal pain [None]
  - Thrombocytopenia [None]
  - Leukopenia [None]
  - Nausea [None]
  - Cystitis [None]
  - Vomiting [None]
  - Anaemia [None]
  - Neutropenia [None]
  - Urinary tract infection [None]

NARRATIVE: CASE EVENT DATE: 20100331
